FAERS Safety Report 25357257 (Version 1)
Quarter: 2025Q2

REPORT INFORMATION
  Report Type: Spontaneous
  Country: SE (occurrence: SE)
  Receive Date: 20250526
  Receipt Date: 20250526
  Transmission Date: 20250716
  Serious: Yes (Hospitalization, Other)
  Sender: ORGANON
  Company Number: SE-LABORATORIOS LICONSA S.A.-2504SE03128

PATIENT
  Age: 58 Year
  Sex: Male
  Weight: 105 kg

DRUGS (1)
  1. LOSARTAN POTASSIUM [Suspect]
     Active Substance: LOSARTAN POTASSIUM
     Indication: Product used for unknown indication
     Dates: start: 202501, end: 20250322

REACTIONS (7)
  - Thrombocytopenia [Not Recovered/Not Resolved]
  - Immune thrombocytopenia [Not Recovered/Not Resolved]
  - Epistaxis [Unknown]
  - Oral mucosa haematoma [Unknown]
  - Auricular haematoma [Unknown]
  - Fatigue [Unknown]
  - Contusion [Unknown]
